FAERS Safety Report 5319187-1 (Version None)
Quarter: 2007Q2

REPORT INFORMATION
  Report Type: 
  Country: None (occurrence: None)
  Receive Date: 20070508
  Receipt Date: 20070427
  Transmission Date: 20071010
  Serious: Yes (Hospitalization)
  Sender: FDA-Public Use
  Company Number: AT-ASTRAZENECA-2007PK00912

PATIENT
  Age: 84 Year
  Sex: Female

DRUGS (8)
  1. SEROQUEL [Suspect]
     Route: 048
     Dates: start: 20070122, end: 20070123
  2. SEROQUEL [Suspect]
     Route: 048
     Dates: start: 20070124, end: 20070125
  3. SEROQUEL [Suspect]
     Route: 048
     Dates: start: 20070126, end: 20070130
  4. FOSAMAX [Concomitant]
  5. THYREX [Concomitant]
  6. PANTOPRAZOLE SODIUM [Concomitant]
  7. KOMBI KALZ BTL. [Concomitant]
  8. LAEVOLAC [Concomitant]

REACTIONS (4)
  - LEUKOPENIA [None]
  - LYMPHOPENIA [None]
  - NAUSEA [None]
  - VOMITING [None]
